FAERS Safety Report 13005604 (Version 1)
Quarter: 2016Q4

REPORT INFORMATION
  Report Type: Spontaneous
  Country: US (occurrence: US)
  Receive Date: 20161207
  Receipt Date: 20161207
  Transmission Date: 20170207
  Serious: Yes (Other)
  Sender: FDA-Public Use
  Company Number: US-JNJFOC-20161118524

PATIENT
  Age: 30 Year
  Sex: Female
  Weight: 60.33 kg

DRUGS (3)
  1. PREVALITE [Concomitant]
     Active Substance: CHOLESTYRAMINE
     Route: 065
     Dates: start: 20160823
  2. REMICADE [Suspect]
     Active Substance: INFLIXIMAB
     Indication: COLITIS ULCERATIVE
     Route: 042
     Dates: start: 20160411
  3. REMICADE [Suspect]
     Active Substance: INFLIXIMAB
     Indication: COLITIS ULCERATIVE
     Route: 042
     Dates: start: 20161115

REACTIONS (10)
  - Bronchospasm [Unknown]
  - Skin warm [Recovering/Resolving]
  - Cough [Recovering/Resolving]
  - Off label use [Unknown]
  - Infusion related reaction [Recovering/Resolving]
  - Erythema [Recovering/Resolving]
  - Frequent bowel movements [Unknown]
  - Product use issue [Unknown]
  - Chills [Unknown]
  - Hyperhidrosis [Recovering/Resolving]

NARRATIVE: CASE EVENT DATE: 20160411
